FAERS Safety Report 19723612 (Version 1)
Quarter: 2021Q3

REPORT INFORMATION
  Report Type: Spontaneous
  Country: IN (occurrence: IN)
  Receive Date: 20210819
  Receipt Date: 20210819
  Transmission Date: 20211014
  Serious: Yes (Hospitalization, Other)
  Sender: FDA-Public Use
  Company Number: IN-ALLERGAN-2129071US

PATIENT
  Sex: Male

DRUGS (18)
  1. CRESEMBA [Suspect]
     Active Substance: ISAVUCONAZONIUM SULFATE
     Indication: PRODUCT USED FOR UNKNOWN INDICATION
     Dosage: 200 MG, QD
     Route: 048
     Dates: start: 20210723
  2. TOFANTA [Suspect]
     Active Substance: TOLVAPTAN
     Indication: PRODUCT USED FOR UNKNOWN INDICATION
     Dosage: 1 DF, BID
     Route: 048
  3. COLTRO [Suspect]
     Active Substance: ROSUVASTATIN CALCIUM
     Indication: PRODUCT USED FOR UNKNOWN INDICATION
  4. PAUSE [Suspect]
     Active Substance: TRANEXAMIC ACID
     Indication: PRODUCT USED FOR UNKNOWN INDICATION
  5. LONAZEP MD [Suspect]
     Active Substance: CLONAZEPAM
     Indication: PRODUCT USED FOR UNKNOWN INDICATION
  6. LANOL ER [ACETAMINOPHEN] [Suspect]
     Active Substance: ACETAMINOPHEN
     Indication: PRODUCT USED FOR UNKNOWN INDICATION
  7. TRYPTOMER [Suspect]
     Active Substance: AMITRIPTYLINE
     Indication: PRODUCT USED FOR UNKNOWN INDICATION
  8. SIBELIUM [FLUNARIZINE DIHYDROCHLORIDE] [Suspect]
     Active Substance: FLUNARIZINE HYDROCHLORIDE
     Indication: PRODUCT USED FOR UNKNOWN INDICATION
  9. CEFTAZIDIME;AVIBACTAM ? BP [Suspect]
     Active Substance: AVIBACTAM SODIUM\CEFTAZIDIME
     Indication: PRODUCT USED FOR UNKNOWN INDICATION
     Dosage: UNK
  10. PENTASURE [Suspect]
     Active Substance: CARBOHYDRATES\FATTY ACIDS\MINERALS\PROTEIN\VITAMINS
     Indication: PRODUCT USED FOR UNKNOWN INDICATION
  11. CLOPITAB?A [Suspect]
     Active Substance: ASPIRIN\CLOPIDOGREL BISULFATE
     Indication: PRODUCT USED FOR UNKNOWN INDICATION
  12. CANDID MOUTH PAINT [Suspect]
     Active Substance: CLOTRIMAZOLE
     Indication: PRODUCT USED FOR UNKNOWN INDICATION
  13. CRESEMBA [Suspect]
     Active Substance: ISAVUCONAZONIUM SULFATE
     Dosage: 200 MG, TID
     Route: 048
     Dates: start: 20210721
  14. DYTOR [Suspect]
     Active Substance: TORSEMIDE
     Indication: PRODUCT USED FOR UNKNOWN INDICATION
  15. TOFE [Suspect]
     Active Substance: FOLIC ACID\IRON
     Indication: PRODUCT USED FOR UNKNOWN INDICATION
  16. ULTRACET [Suspect]
     Active Substance: ACETAMINOPHEN\TRAMADOL HYDROCHLORIDE
     Indication: PRODUCT USED FOR UNKNOWN INDICATION
  17. ECOSPRIN AV [Suspect]
     Active Substance: ASPIRIN\ATORVASTATIN
     Indication: PRODUCT USED FOR UNKNOWN INDICATION
     Dosage: UNK
  18. VANCOMYCIN HCL [Suspect]
     Active Substance: VANCOMYCIN HYDROCHLORIDE
     Indication: PRODUCT USED FOR UNKNOWN INDICATION

REACTIONS (12)
  - Urinary tract infection [Unknown]
  - Post-acute COVID-19 syndrome [Unknown]
  - Eye pain [Unknown]
  - Headache [Unknown]
  - Syncope [Unknown]
  - Haemoglobin abnormal [Unknown]
  - Pyrexia [Recovered/Resolved]
  - White blood cell count abnormal [Unknown]
  - Red blood cell sedimentation rate abnormal [Unknown]
  - Myocardial ischaemia [Unknown]
  - Osteomyelitis [Unknown]
  - Platelet count abnormal [Unknown]
